FAERS Safety Report 4545880-4 (Version None)
Quarter: 2005Q1

REPORT INFORMATION
  Report Type: 
  Country: None (occurrence: None)
  Receive Date: 20050103
  Receipt Date: 20041222
  Transmission Date: 20050727
  Serious: Yes (Disabling)
  Sender: FDA-Public Use
  Company Number: 2004087123

PATIENT
  Age: 68 Year
  Sex: Male

DRUGS (5)
  1. ZITHROMAX [Suspect]
     Indication: PHARYNGITIS
     Dosage: 500 MG (500 MG, 1 IN 1 D), ORAL
     Route: 048
     Dates: start: 20040101
  2. FAMOTIDINE [Concomitant]
  3. ASCORBIC ACID [Concomitant]
  4. TOCOPHEROL CONCENTRATE CAP [Concomitant]
  5. CENTRUM SILVER (ASCORBIC ACID, CALCIUM, MINERALS NOS, RETINOL, TOCOPHE [Concomitant]

REACTIONS (5)
  - CONDITION AGGRAVATED [None]
  - DEAFNESS [None]
  - DRUG INEFFECTIVE [None]
  - EUSTACHIAN TUBE DYSFUNCTION [None]
  - TINNITUS [None]
